FAERS Safety Report 6416160-7 (Version None)
Quarter: 2009Q4

REPORT INFORMATION
  Report Type: 
  Country: None (occurrence: None)
  Receive Date: 20091022
  Receipt Date: 20091019
  Transmission Date: 20100525
  Serious: Yes (Life-Threatening, Hospitalization)
  Sender: FDA-Public Use
  Company Number: 2009SP031071

PATIENT
  Age: 68 Year
  Sex: Female
  Weight: 55 kg

DRUGS (4)
  1. DESLORATADINE [Suspect]
     Indication: CONJUNCTIVITIS
     Dosage: 5 MG; QD; PO
     Route: 048
     Dates: start: 20090911, end: 20090920
  2. AUGMENTIN [Suspect]
     Indication: DRUG USE FOR UNKNOWN INDICATION
     Dosage: 1 DF; BID; PO
     Route: 048
     Dates: start: 20090914, end: 20090916
  3. ACETAMINOPHEN [Suspect]
     Indication: DRUG USE FOR UNKNOWN INDICATION
     Dosage: PO
     Route: 048
     Dates: start: 20090914
  4. RIFAMYCINE (RIFAMYCINE SODIUM) [Suspect]
     Indication: CONJUNCTIVITIS
     Dosage: 3 GTT; QD; OPH
     Route: 047
     Dates: start: 20090911, end: 20090920

REACTIONS (20)
  - ACIDOSIS [None]
  - BLOOD TRIGLYCERIDES INCREASED [None]
  - BRAIN NATRIURETIC PEPTIDE INCREASED [None]
  - CHEILOSIS [None]
  - CONJUNCTIVITIS [None]
  - COUGH [None]
  - CYTOLYTIC HEPATITIS [None]
  - DIABETES MELLITUS [None]
  - DRUG HYPERSENSITIVITY [None]
  - DRUG RASH WITH EOSINOPHILIA AND SYSTEMIC SYMPTOMS [None]
  - DYSPNOEA [None]
  - FACE OEDEMA [None]
  - FATIGUE [None]
  - GENERAL PHYSICAL HEALTH DETERIORATION [None]
  - KETONURIA [None]
  - LYMPHADENOPATHY [None]
  - MACROPHAGE ACTIVATION [None]
  - PHARYNGITIS [None]
  - VITAMIN D DEFICIENCY [None]
  - WEIGHT DECREASED [None]
